FAERS Safety Report 8476616-2 (Version None)
Quarter: 2012Q2

REPORT INFORMATION
  Report Type: 
  Country: None (occurrence: None)
  Receive Date: 20120628
  Receipt Date: 20120622
  Transmission Date: 20120825
  Serious: Yes (Death)
  Sender: FDA-Public Use
  Company Number: US-PFIZER INC-2011197893

PATIENT
  Sex: Male

DRUGS (2)
  1. SUTENT [Suspect]
     Indication: PANCREATIC NEUROENDOCRINE TUMOUR
     Dosage: 25 MG, DAILY FOR 21 DAYS/OFF 7 DAYS
     Route: 048
  2. SUTENT [Suspect]
     Dosage: 12.5 MG, DAILY FOR 21 DAYS/OFF 7 DAYS
     Route: 048
     Dates: start: 20110610

REACTIONS (2)
  - DISEASE PROGRESSION [None]
  - PANCREATIC NEUROENDOCRINE TUMOUR [None]
